FAERS Safety Report 13645054 (Version 1)
Quarter: 2017Q2

REPORT INFORMATION
  Report Type: Spontaneous
  Country: US (occurrence: US)
  Receive Date: 20170612
  Receipt Date: 20170612
  Transmission Date: 20170830
  Serious: No
  Sender: FDA-Public Use
  Company Number: US-ROCHE-697910

PATIENT
  Sex: Female

DRUGS (15)
  1. VITAMIN D [Concomitant]
     Active Substance: CHOLECALCIFEROL
     Dosage: DRUG: VITAMIN D
     Route: 065
  2. TEMODAR [Suspect]
     Active Substance: TEMOZOLOMIDE
     Indication: CARCINOID TUMOUR OF THE GASTROINTESTINAL TRACT
     Route: 065
  3. ZOCOR [Concomitant]
     Active Substance: SIMVASTATIN
     Route: 065
  4. VITAMIN C [Concomitant]
     Active Substance: ASCORBIC ACID
     Route: 065
  5. VITAMIN E [Concomitant]
     Active Substance: .ALPHA.-TOCOPHEROL
     Route: 065
  6. ASPIRIN. [Concomitant]
     Active Substance: ASPIRIN
     Route: 065
  7. TIMOLOL. [Concomitant]
     Active Substance: TIMOLOL
     Route: 065
  8. CALCIUM [Concomitant]
     Active Substance: CALCIUM
     Route: 065
  9. XELODA [Suspect]
     Active Substance: CAPECITABINE
     Indication: PRODUCT USED FOR UNKNOWN INDICATION
     Route: 065
  10. FOLIC ACID. [Concomitant]
     Active Substance: FOLIC ACID
     Route: 065
  11. LOTREL [Concomitant]
     Active Substance: AMLODIPINE BESYLATE\BENAZEPRIL HYDROCHLORIDE
     Route: 065
  12. PRILOSEC [Concomitant]
     Active Substance: OMEPRAZOLE MAGNESIUM
     Route: 065
  13. TRAVATAN [Concomitant]
     Active Substance: TRAVOPROST
     Route: 065
  14. FUROSEMIDE. [Concomitant]
     Active Substance: FUROSEMIDE
     Route: 065
  15. K-DUR [Concomitant]
     Active Substance: POTASSIUM CHLORIDE
     Route: 065

REACTIONS (4)
  - Hypoaesthesia [Unknown]
  - Arthritis [Unknown]
  - Pain [Unknown]
  - Glossodynia [Recovering/Resolving]
